FAERS Safety Report 8481143-2 (Version None)
Quarter: 2012Q3

REPORT INFORMATION
  Report Type: 
  Country: None (occurrence: None)
  Receive Date: 20120702
  Receipt Date: 20120626
  Transmission Date: 20120928
  Serious: Yes (Other)
  Sender: FDA-Public Use
  Company Number: PHHY2011JP93809

PATIENT
  Sex: Male

DRUGS (14)
  1. LYRICA [Concomitant]
     Indication: METASTATIC RENAL CELL CARCINOMA
     Dosage: 150 MG, UNK
     Route: 048
     Dates: start: 20110702
  2. SUNITINIB MALATE [Concomitant]
     Indication: METASTATIC RENAL CELL CARCINOMA
     Dosage: 50 MG, UNK
     Route: 048
     Dates: start: 20110107, end: 20110203
  3. SORAFENIB TOSILATE [Concomitant]
     Indication: METASTATIC RENAL CELL CARCINOMA
     Dosage: 800 MG, UNK
     Route: 048
     Dates: start: 20090518, end: 20110103
  4. HACHIAZULE [Concomitant]
     Indication: PROPHYLAXIS
     Dosage: 6 G, UNK
     Route: 048
     Dates: start: 20110702
  5. AFINITOR [Suspect]
     Dosage: 10 MG, DAILY
     Route: 048
     Dates: start: 20110905
  6. ZOMETA [Suspect]
     Indication: METASTASES TO BONE
     Dosage: 4 MG, UNK
     Route: 041
     Dates: start: 20090526, end: 20090526
  7. CLARITHROMYCIN [Concomitant]
     Indication: METASTATIC RENAL CELL CARCINOMA
     Dosage: 400 MG, UNK
     Route: 048
     Dates: start: 20110704
  8. ZOMETA [Suspect]
     Dosage: 4 MG, UNK
     Route: 041
     Dates: start: 20110131, end: 20110131
  9. NEUROTROPIN [Concomitant]
     Indication: METASTATIC RENAL CELL CARCINOMA
     Dosage: 16 IU, UNK
     Route: 048
     Dates: start: 20110702
  10. AFINITOR [Suspect]
     Indication: METASTATIC RENAL CELL CARCINOMA
     Dosage: 10 MG, DAILY
     Route: 048
     Dates: start: 20110318, end: 20110701
  11. AFINITOR [Suspect]
     Dosage: 5 MG, DAILY
     Route: 048
     Dates: start: 20110805, end: 20110904
  12. ACETAMINOPHEN [Concomitant]
     Indication: METASTATIC RENAL CELL CARCINOMA
     Dosage: 1800 MG, UNK
     Route: 048
     Dates: start: 20110318
  13. ONEALFA [Concomitant]
     Indication: METASTATIC RENAL CELL CARCINOMA
     Dosage: 0.25 UG, UNK
     Route: 048
     Dates: start: 20110702
  14. FAMOTIDINE [Concomitant]
     Indication: METASTATIC RENAL CELL CARCINOMA
     Dosage: 20 MG, UNK
     Route: 048
     Dates: start: 20110318, end: 20110407

REACTIONS (2)
  - OSTEOMYELITIS [None]
  - OSTEONECROSIS OF JAW [None]
